FAERS Safety Report 12724789 (Version 4)
Quarter: 2016Q4

REPORT INFORMATION
  Report Type: Report from Study
  Country: AU (occurrence: AU)
  Receive Date: 20160908
  Receipt Date: 20161031
  Transmission Date: 20170207
  Serious: Yes (Hospitalization)
  Sender: FDA-Public Use
  Company Number: AU-PFIZER INC-2016409101

PATIENT
  Age: 43 Year
  Sex: Female
  Weight: 78.3 kg

DRUGS (15)
  1. DOMPERIDONE [Concomitant]
     Active Substance: DOMPERIDONE
     Indication: NAUSEA
     Dosage: 10 MG, 3X/DAY
     Route: 048
     Dates: start: 20160803
  2. VITAMIN D /00107901/ [Concomitant]
     Active Substance: ERGOCALCIFEROL
     Indication: HYPOVITAMINOSIS
     Dosage: 2 TABLETS, DAILY
     Route: 048
     Dates: start: 20160803
  3. OMEPRAZOLE. [Concomitant]
     Active Substance: OMEPRAZOLE
     Indication: GASTROOESOPHAGEAL REFLUX DISEASE
     Dosage: 20 MG, DAILY
     Route: 048
     Dates: start: 20160803
  4. PHOSPHATE-SANDOZ [Concomitant]
     Active Substance: SODIUM PHOSPHATE, MONOBASIC, ANHYDROUS
     Indication: BLOOD PHOSPHORUS DECREASED
     Dosage: 2 DF, DAILY
     Route: 048
     Dates: start: 20160803
  5. CELECOXIB. [Concomitant]
     Active Substance: CELECOXIB
     Indication: PAIN
     Dosage: 200 MG, 2X/DAY
     Route: 048
     Dates: start: 20160803, end: 20160826
  6. LETROZOLE. [Concomitant]
     Active Substance: LETROZOLE
     Indication: BREAST CANCER
     Dosage: 2.5 MG, UNK
     Dates: start: 20160812
  7. CLEXANE [Concomitant]
     Active Substance: ENOXAPARIN SODIUM
     Indication: PULMONARY EMBOLISM
     Dosage: 120 MG, DAILY
     Route: 058
     Dates: start: 20160812, end: 20160826
  8. CALTRATE /00944201/ [Concomitant]
     Active Substance: CALCIUM CARBONATE\CHOLECALCIFEROL
     Indication: HYPOCALCAEMIA
     Dosage: 2 TABLETS, DAILY
     Route: 048
     Dates: start: 20160803
  9. MAGNESIUM [Concomitant]
     Active Substance: MAGNESIUM
     Indication: BLOOD MAGNESIUM DECREASED
     Dosage: 2 TABLETS, 2X/DAY
     Route: 048
     Dates: start: 20160803
  10. ONDANSETRON [Concomitant]
     Active Substance: ONDANSETRON
     Indication: NAUSEA
     Dosage: 4 MG, DAILY
     Route: 048
     Dates: start: 20160803
  11. PALBOCICLIB [Suspect]
     Active Substance: PALBOCICLIB
     Indication: BREAST CANCER
     Dosage: 125 MG, UNK
     Route: 048
     Dates: start: 20160812, end: 20160825
  12. LYRICA [Concomitant]
     Active Substance: PREGABALIN
     Indication: PAIN
     Dosage: 225 MG, 2X/DAY
     Route: 048
     Dates: start: 20160803
  13. PANADOL /00020001/ [Concomitant]
     Indication: PAIN
     Dosage: 1 G, AS NEEDED
     Route: 048
     Dates: start: 20160803
  14. HYDROMORPHONE SR [Concomitant]
     Indication: PAIN
     Dosage: 28 MG, ONCE AT NIGHT
     Route: 048
     Dates: start: 20160803
  15. FRUSEMIDE /00032601/ [Concomitant]
     Active Substance: FUROSEMIDE
     Indication: OEDEMA
     Dosage: 20 MG, DAILY
     Route: 048
     Dates: start: 20160803

REACTIONS (1)
  - Pancytopenia [Recovered/Resolved]

NARRATIVE: CASE EVENT DATE: 20160826
